FAERS Safety Report 10940398 (Version 2)
Quarter: 2015Q2

REPORT INFORMATION
  Report Type: Spontaneous
  Country: US (occurrence: US)
  Receive Date: 20150322
  Receipt Date: 20150524
  Transmission Date: 20150821
  Serious: Yes (Other)
  Sender: FDA-Public Use
  Company Number: US-JNJFOC-20130203449

PATIENT
  Age: 58 Year
  Sex: Male

DRUGS (4)
  1. EFFIENT [Concomitant]
     Active Substance: PRASUGREL HYDROCHLORIDE
     Indication: PRODUCT USED FOR UNKNOWN INDICATION
     Dosage: BULK
     Route: 065
  2. ASPIRIN. [Concomitant]
     Active Substance: ASPIRIN
     Indication: PRODUCT USED FOR UNKNOWN INDICATION
     Route: 065
  3. ANGIOMAX [Concomitant]
     Active Substance: BIVALIRUDIN
     Indication: PRODUCT USED FOR UNKNOWN INDICATION
     Route: 065
  4. REOPRO [Suspect]
     Active Substance: ABCIXIMAB
     Indication: ANGINA UNSTABLE
     Dosage: 10 MG/5 ML ONE DOSE
     Route: 065
     Dates: start: 20130131, end: 20130131

REACTIONS (1)
  - Thrombocytopenia [Unknown]
